FAERS Safety Report 25445916 (Version 1)
Quarter: 2025Q2

REPORT INFORMATION
  Report Type: Spontaneous
  Country: US (occurrence: US)
  Receive Date: 20250617
  Receipt Date: 20250617
  Transmission Date: 20250716
  Serious: No
  Sender: Velzen Pharma
  Company Number: US-Velzen pharma pvt ltd-2178867

PATIENT

DRUGS (1)
  1. NIFEDIPINE [Suspect]
     Active Substance: NIFEDIPINE
     Indication: Product used for unknown indication

REACTIONS (4)
  - Dyspepsia [Unknown]
  - Palpitations [Unknown]
  - Dizziness [Unknown]
  - Body temperature increased [Unknown]
